FAERS Safety Report 14964365 (Version 2)
Quarter: 2018Q2

REPORT INFORMATION
  Report Type: Spontaneous
  Country: US (occurrence: US)
  Receive Date: 20180601
  Receipt Date: 20180604
  Transmission Date: 20180711
  Serious: No
  Sender: FDA-Public Use
  Company Number: US-BAYER-2018-103718

PATIENT
  Sex: Female

DRUGS (2)
  1. ULTRAVIST [Suspect]
     Active Substance: IOPROMIDE
     Indication: COMPUTERISED TOMOGRAM
     Dosage: UNK UNK, ONCE
     Route: 042
     Dates: start: 20180529, end: 20180529
  2. ULTRAVIST [Suspect]
     Active Substance: IOPROMIDE
     Indication: COMPUTERISED TOMOGRAM
     Dosage: UNK
     Dates: start: 20180518, end: 20180518

REACTIONS (3)
  - Eye pruritus [None]
  - Lip pruritus [None]
  - Urticaria [Recovered/Resolved]

NARRATIVE: CASE EVENT DATE: 20180518
